FAERS Safety Report 5252602-0 (Version None)
Quarter: 2007Q1

REPORT INFORMATION
  Report Type: 
  Country: None (occurrence: None)
  Receive Date: 20070227
  Receipt Date: 20070227
  Transmission Date: 20070707
  Serious: Yes (Hospitalization)
  Sender: FDA-Public Use
  Company Number: None

PATIENT
  Age: 51 Year
  Sex: Female
  Weight: 47.1741 kg

DRUGS (5)
  1. BACLOFEN   5MG [Suspect]
     Indication: MUSCLE RELAXANT THERAPY
     Dosage: 5MG  TID  PO
     Route: 048
  2. DILAUDID [Concomitant]
  3. VICODIN [Concomitant]
  4. ATIVAN [Concomitant]
  5. QUETIPINE [Concomitant]

REACTIONS (3)
  - LOSS OF CONSCIOUSNESS [None]
  - MENTAL STATUS CHANGES [None]
  - THERAPEUTIC RESPONSE DECREASED [None]
